FAERS Safety Report 10456850 (Version 1)
Quarter: 2014Q3

REPORT INFORMATION
  Report Type: Spontaneous
  Country: US (occurrence: None)
  Receive Date: 20140915
  Receipt Date: 20140915
  Transmission Date: 20150326
  Serious: Yes (Hospitalization)
  Sender: FDA-Public Use
  Company Number: None

PATIENT
  Age: 69 Year
  Sex: Female
  Weight: 67.59 kg

DRUGS (7)
  1. ASA [Concomitant]
     Active Substance: ASPIRIN
  2. LOPRESSOR [Concomitant]
     Active Substance: METOPROLOL TARTRATE
  3. DOXEPIN 25 MG [Suspect]
     Active Substance: DOXEPIN
     Indication: PRURITUS
     Dosage: 25 MG, 1 TABLET AT BETIME, MOUTH
     Route: 048
     Dates: start: 20140905, end: 20140906
  4. HCTZ [Concomitant]
     Active Substance: HYDROCHLOROTHIAZIDE
  5. XANAX [Concomitant]
     Active Substance: ALPRAZOLAM
  6. FLEXERIL [Concomitant]
     Active Substance: CYCLOBENZAPRINE HYDROCHLORIDE
  7. AMLODIPINE [Concomitant]
     Active Substance: AMLODIPINE BESYLATE

REACTIONS (1)
  - Throat tightness [None]

NARRATIVE: CASE EVENT DATE: 20140905
